FAERS Safety Report 8075450-5 (Version None)
Quarter: 2012Q1

REPORT INFORMATION
  Report Type: 
  Country: None (occurrence: None)
  Receive Date: 20120127
  Receipt Date: 20120119
  Transmission Date: 20120608
  Serious: Yes (Other)
  Sender: FDA-Public Use
  Company Number: US-ABBOTT-12P-163-0895011-00

PATIENT
  Sex: Female
  Weight: 90.8 kg

DRUGS (18)
  1. SULFASALAZINE [Suspect]
     Indication: RHEUMATOID ARTHRITIS
     Dates: end: 20111230
  2. METHOTREXATE [Concomitant]
     Indication: RHEUMATOID ARTHRITIS
     Route: 048
  3. HYDROCHLOROTHIAZIDE [Concomitant]
     Indication: HYPERTENSION
  4. FOLIC ACID [Concomitant]
     Indication: VITAMIN SUPPLEMENTATION
  5. METHOTREXATE [Concomitant]
     Indication: CROHN'S DISEASE
  6. NEXIUM [Concomitant]
     Indication: BARRETT'S OESOPHAGUS
  7. NEXIUM [Concomitant]
     Indication: DYSPEPSIA
  8. NEXIUM [Concomitant]
     Indication: GASTROOESOPHAGEAL REFLUX DISEASE
  9. CALCIUM W/MAGNESIUM/VITAMIN D [Concomitant]
     Indication: MINERAL SUPPLEMENTATION
  10. HUMIRA [Suspect]
     Dates: start: 20111001
  11. SULFASALAZINE [Suspect]
     Indication: CROHN'S DISEASE
  12. HUMIRA [Suspect]
     Indication: RHEUMATOID ARTHRITIS
     Dates: start: 20080101
  13. AMITIZA [Concomitant]
     Indication: CONSTIPATION
  14. MULTI-VITAMIN [Concomitant]
     Indication: VITAMIN SUPPLEMENTATION
  15. FISH OIL [Concomitant]
     Indication: SUPPLEMENTATION THERAPY
  16. HUMIRA [Suspect]
     Dates: start: 20120101
  17. ATACAND [Concomitant]
     Indication: HYPERTENSION
  18. HUMIRA [Suspect]
     Indication: CROHN'S DISEASE
     Dates: start: 20110801

REACTIONS (15)
  - IMPAIRED WORK ABILITY [None]
  - PITYRIASIS ROSEA [None]
  - DYSSTASIA [None]
  - PRURITUS [None]
  - HYPERHIDROSIS [None]
  - HORMONE LEVEL ABNORMAL [None]
  - MENISCUS LESION [None]
  - ARTHRALGIA [None]
  - FATIGUE [None]
  - URTICARIA [None]
  - JOINT SWELLING [None]
  - INSOMNIA [None]
  - RASH [None]
  - WEIGHT INCREASED [None]
  - GAIT DISTURBANCE [None]
